FAERS Safety Report 5521526-3 (Version None)
Quarter: 2007Q4

REPORT INFORMATION
  Report Type: 
  Country: None (occurrence: None)
  Receive Date: 20071116
  Receipt Date: 20071116
  Transmission Date: 20080405
  Serious: Yes (Death, Hospitalization)
  Sender: FDA-Public Use
  Company Number: None

PATIENT
  Age: 65 Year
  Sex: Female
  Weight: 63.9572 kg

DRUGS (2)
  1. TEMODAR [Suspect]
     Indication: MALIGNANT MELANOMA
     Dosage: 170MG PO DAILY
     Route: 048
     Dates: start: 20070228, end: 20070320
  2. SUTENT [Suspect]
     Indication: MALIGNANT MELANOMA
     Dosage: 25 MG PO DAILY
     Route: 048
     Dates: start: 20070307, end: 20070327

REACTIONS (5)
  - MALIGNANT NEOPLASM PROGRESSION [None]
  - METASTASES TO CENTRAL NERVOUS SYSTEM [None]
  - METASTASES TO LUNG [None]
  - METASTATIC MALIGNANT MELANOMA [None]
  - PNEUMONIA STAPHYLOCOCCAL [None]
